FAERS Safety Report 6557239-9 (Version None)
Quarter: 2010Q1

REPORT INFORMATION
  Report Type: 
  Country: None (occurrence: None)
  Receive Date: 20100129
  Receipt Date: 20100121
  Transmission Date: 20100710
  Serious: Yes (Death)
  Sender: FDA-Public Use
  Company Number: US-BIOGENIDEC-2008BI031660

PATIENT
  Age: 41 Year
  Sex: Male

DRUGS (13)
  1. TYSABRI [Suspect]
     Indication: MULTIPLE SCLEROSIS
     Route: 042
     Dates: start: 20080807, end: 20080904
  2. LUNESTA [Concomitant]
  3. FLEXERIL [Concomitant]
  4. NEURONTIN [Concomitant]
     Dates: start: 20080825
  5. PERCOCET [Concomitant]
     Dates: start: 20080429
  6. SEROQUEL [Concomitant]
     Dates: start: 20080429
  7. VITAMIN B-12 [Concomitant]
     Dosage: DOSE UNIT:1
     Route: 030
     Dates: start: 20080516
  8. ATENOLOL [Concomitant]
     Dates: start: 20080429
  9. KLONOPIN [Concomitant]
     Dates: start: 20080404
  10. ULTRAM [Concomitant]
     Dates: start: 20080529
  11. DARVOCET-N 100 [Concomitant]
     Dates: start: 20080429
  12. ASPIRIN [Concomitant]
     Dates: start: 20080421
  13. PLAVIX [Concomitant]
     Dates: start: 20080912

REACTIONS (3)
  - CARDIAC DISORDER [None]
  - CEREBROVASCULAR ACCIDENT [None]
  - MULTIPLE SCLEROSIS [None]
